FAERS Safety Report 9510073 (Version 2)
Quarter: 2013Q3

REPORT INFORMATION
  Report Type: Spontaneous
  Country: US (occurrence: US)
  Receive Date: 20130909
  Receipt Date: 20130909
  Transmission Date: 20140515
  Serious: Yes (Hospitalization)
  Sender: FDA-Public Use
  Company Number: US-BRISTOL-MYERS SQUIBB COMPANY-17126780

PATIENT
  Age: 81 Year
  Sex: Female

DRUGS (6)
  1. SENNA [Concomitant]
  2. LASIX [Concomitant]
  3. ABILIFY [Suspect]
     Indication: THINKING ABNORMAL
     Dosage: CURRENTLY AT 30MG, INCREASED TO 60MG + 120MG AND DECREASED
  4. ABILIFY [Suspect]
     Indication: ANXIETY
     Dosage: CURRENTLY AT 30MG, INCREASED TO 60MG + 120MG AND DECREASED
  5. PERCOCET [Suspect]
  6. CYMBALTA [Suspect]

REACTIONS (7)
  - Suicidal ideation [Unknown]
  - Feeling abnormal [Unknown]
  - Mental impairment [Unknown]
  - Dry mouth [Unknown]
  - Dry eye [Unknown]
  - Pain [Unknown]
  - Asthenia [Unknown]
